FAERS Safety Report 18437436 (Version 3)
Quarter: 2020Q4

REPORT INFORMATION
  Report Type: Report from Study
  Country: US (occurrence: US)
  Receive Date: 20201028
  Receipt Date: 20201203
  Transmission Date: 20210114
  Serious: Yes (Death, Other)
  Sender: FDA-Public Use
  Company Number: US-AGIOS-2010US02226

PATIENT

DRUGS (1)
  1. TIBSOVO [Suspect]
     Active Substance: IVOSIDENIB
     Indication: ACUTE MYELOID LEUKAEMIA
     Dosage: 250 MILLIGRAM, 2 TABLETS (500 MG) DAILY
     Route: 048
     Dates: start: 20201008, end: 20201130

REACTIONS (7)
  - Rash macular [Unknown]
  - Asthenia [Unknown]
  - Death [Fatal]
  - Platelet count decreased [Unknown]
  - Loss of consciousness [Unknown]
  - White blood cell count decreased [Unknown]
  - Fall [Unknown]
